FAERS Safety Report 20078473 (Version 2)
Quarter: 2022Q1

REPORT INFORMATION
  Report Type: Spontaneous
  Country: US (occurrence: US)
  Receive Date: 20211117
  Receipt Date: 20220224
  Transmission Date: 20220423
  Serious: No
  Sender: FDA-Public Use
  Company Number: US-JNJFOC-20211117630

PATIENT
  Age: 5 Year
  Sex: Male

DRUGS (6)
  1. RISPERDAL [Suspect]
     Active Substance: RISPERIDONE
     Indication: Bipolar disorder
     Route: 048
     Dates: start: 2008
  2. RISPERDAL [Suspect]
     Active Substance: RISPERIDONE
     Dosage: 0.25 MG 4 TABLETS TWICE DAILY
     Route: 048
     Dates: start: 20121108
  3. RISPERDAL [Suspect]
     Active Substance: RISPERIDONE
     Dosage: 0.5 MG 3-4 IN AM AND 0.5 MG 1 HALF IN PM
     Route: 048
     Dates: start: 20121112
  4. RISPERDAL [Suspect]
     Active Substance: RISPERIDONE
     Dosage: SINCE THE AGE OF 5
     Route: 048
     Dates: end: 201212
  5. RISPERIDONE [Suspect]
     Active Substance: RISPERIDONE
     Indication: Product used for unknown indication
     Route: 048
  6. RISPERIDONE [Suspect]
     Active Substance: RISPERIDONE
     Indication: Product used for unknown indication
     Route: 065

REACTIONS (4)
  - Gynaecomastia [Unknown]
  - Off label use [Unknown]
  - Incorrect dose administered [Unknown]
  - Wrong technique in product usage process [Unknown]

NARRATIVE: CASE EVENT DATE: 20120101
